FAERS Safety Report 5346794-2 (Version None)
Quarter: 2007Q2

REPORT INFORMATION
  Report Type: 
  Country: None (occurrence: None)
  Receive Date: 20070604
  Receipt Date: 20070518
  Transmission Date: 20071010
  Serious: Yes (Hospitalization)
  Sender: FDA-Public Use
  Company Number: 8024188

PATIENT
  Age: 34 Year
  Sex: Male

DRUGS (6)
  1. KEPPRA [Suspect]
     Indication: EPILEPSY
     Dosage: 250 MG 2/D PO
     Route: 048
     Dates: start: 20070401, end: 20070101
  2. KEPPRA [Suspect]
     Indication: EPILEPSY
     Dosage: 1000 MG/D PO
     Route: 048
     Dates: start: 20070101, end: 20070518
  3. EPITOMAX [Concomitant]
  4. GARDAN TAB [Concomitant]
  5. SERESTA [Concomitant]
  6. DEPAKENE [Concomitant]

REACTIONS (10)
  - CHROMATURIA [None]
  - DIARRHOEA [None]
  - FOOD AVERSION [None]
  - GENERAL PHYSICAL HEALTH DETERIORATION [None]
  - JAUNDICE [None]
  - LIVER DISORDER [None]
  - PRURITUS [None]
  - RASH [None]
  - TRANSAMINASES INCREASED [None]
  - WEIGHT DECREASED [None]
